FAERS Safety Report 5805794-6 (Version None)
Quarter: 2008Q3

REPORT INFORMATION
  Report Type: 
  Country: None (occurrence: None)
  Receive Date: 20080709
  Receipt Date: 20080709
  Transmission Date: 20090109
  Serious: Yes (Hospitalization)
  Sender: FDA-Public Use
  Company Number: None

PATIENT
  Age: 58 Year
  Sex: Male
  Weight: 100 kg

DRUGS (1)
  1. FENTANYL-100 [Suspect]
     Indication: PAIN
     Dosage: 75 MCG OTHER TOP
     Route: 061
     Dates: start: 20071018, end: 20080214

REACTIONS (5)
  - CHILLS [None]
  - HALLUCINATION [None]
  - HYPOTENSION [None]
  - LETHARGY [None]
  - SEDATION [None]
